FAERS Safety Report 8335356-0 (Version None)
Quarter: 2012Q2

REPORT INFORMATION
  Report Type: 
  Country: None (occurrence: None)
  Receive Date: 20120503
  Receipt Date: 20120424
  Transmission Date: 20120825
  Serious: Yes (Other)
  Sender: FDA-Public Use
  Company Number: US-ELI_LILLY_AND_COMPANY-US201204008576

PATIENT
  Sex: Male

DRUGS (2)
  1. BYDUREON [Suspect]
     Indication: TYPE 2 DIABETES MELLITUS
     Dosage: 2 MG, WEEKLY (1/W)
     Route: 058
     Dates: start: 20120320, end: 20120410
  2. METFORMIN HCL [Concomitant]
     Indication: TYPE 2 DIABETES MELLITUS
     Dosage: UNK

REACTIONS (6)
  - DYSPNOEA [None]
  - URTICARIA [None]
  - CHEST DISCOMFORT [None]
  - BLISTER [None]
  - PRURITUS GENERALISED [None]
  - INJECTION SITE RASH [None]
